FAERS Safety Report 7790882-8 (Version None)
Quarter: 2011Q3

REPORT INFORMATION
  Report Type: 
  Country: None (occurrence: None)
  Receive Date: 20110930
  Receipt Date: 20110926
  Transmission Date: 20111222
  Serious: Yes (Other)
  Sender: FDA-Public Use
  Company Number: CN-ASTRAZENECA-2011SE57497

PATIENT
  Sex: Female

DRUGS (6)
  1. BUPIVACAINE HCL [Suspect]
  2. SALINE [Concomitant]
     Dosage: 1 ML
  3. PHENOBARBITAL TAB [Suspect]
     Dosage: 0.1 G
     Route: 030
  4. COMPOUND SODIUM LACTATE [Suspect]
     Dosage: 300-500 ML
  5. ROPIVACAINE HYDROCHLORIDE [Suspect]
  6. ATROPINE [Suspect]
     Dosage: 0.5 MG
     Route: 030

REACTIONS (3)
  - HEART RATE DECREASED [None]
  - BLOOD PRESSURE DECREASED [None]
  - MEAN ARTERIAL PRESSURE DECREASED [None]
